FAERS Safety Report 25835739 (Version 1)
Quarter: 2025Q3

REPORT INFORMATION
  Report Type: Spontaneous
  Country: US (occurrence: None)
  Receive Date: 20250922
  Receipt Date: 20250922
  Transmission Date: 20251020
  Serious: Yes (unspecified)
  Sender: FDA-CTU
  Company Number: None

PATIENT
  Age: 4 Year
  Sex: Female
  Weight: 18 kg

DRUGS (1)
  1. AMOXICILLIN [Suspect]
     Active Substance: AMOXICILLIN
     Indication: Upper respiratory tract infection
     Dosage: OTHER QUANTITY : 7.5 ML;?FREQUENCY : TWICE A DAY;?
     Route: 048
     Dates: start: 20250919, end: 20250922

REACTIONS (3)
  - Product reconstitution quality issue [None]
  - Physical product label issue [None]
  - Product communication issue [None]

NARRATIVE: CASE EVENT DATE: 20250922
